FAERS Safety Report 9870942 (Version 6)
Quarter: 2014Q3

REPORT INFORMATION
  Report Type: Spontaneous
  Country: US (occurrence: US)
  Receive Date: 20140205
  Receipt Date: 20140803
  Transmission Date: 20150326
  Serious: Yes (Hospitalization, Other)
  Sender: FDA-Public Use
  Company Number: US-009507513-1202USA02278

PATIENT
  Sex: Female
  Weight: 82.54 kg

DRUGS (9)
  1. FOSAMAX [Suspect]
     Active Substance: ALENDRONATE SODIUM
     Dosage: 70 MG, QW
     Route: 048
     Dates: start: 20040301
  2. ALENDRONATE SODIUM. [Suspect]
     Active Substance: ALENDRONATE SODIUM
     Dosage: 70 MG, UNK
     Route: 048
  3. OMEPRAZOLE. [Concomitant]
     Active Substance: OMEPRAZOLE
     Dosage: UNK
     Dates: start: 2006
  4. ACIPHEX [Concomitant]
     Active Substance: RABEPRAZOLE SODIUM
     Dosage: UNK
     Dates: start: 2002
  5. FOSAMAX PLUS D [Suspect]
     Active Substance: ALENDRONATE SODIUM\CHOLECALCIFEROL
     Indication: OSTEOPENIA
     Dosage: 70/2800 MG, QW
     Route: 048
     Dates: start: 20051025, end: 20100228
  6. PRILOSEC [Concomitant]
     Active Substance: OMEPRAZOLE MAGNESIUM
     Dosage: UNK
     Dates: start: 2006
  7. ALENDRONATE SODIUM. [Suspect]
     Active Substance: ALENDRONATE SODIUM
     Dosage: 10 MG, UNK
     Route: 048
  8. FOSAMAX [Suspect]
     Active Substance: ALENDRONATE SODIUM
     Indication: OSTEOPENIA
     Dosage: 10 MG, UNK
     Route: 048
     Dates: start: 20010510, end: 20040301
  9. VITAMINS (UNSPECIFIED) [Concomitant]
     Active Substance: VITAMINS
     Dosage: 2000 IU, QD
     Dates: start: 1999

REACTIONS (40)
  - Polyp [Unknown]
  - Axillary nerve injury [Unknown]
  - Lung infiltration [Unknown]
  - Myocardial ischaemia [Unknown]
  - Hypotension [Unknown]
  - Drug ineffective [Unknown]
  - Gastrooesophageal reflux disease [Unknown]
  - Intramedullary rod insertion [Unknown]
  - Hypercholesterolaemia [Unknown]
  - Bursitis [Unknown]
  - Intervertebral disc protrusion [Unknown]
  - Cardiac murmur [Unknown]
  - Osteoporosis [Unknown]
  - Anxiety [Unknown]
  - Hypoxia [Unknown]
  - Femur fracture [Unknown]
  - Pulmonary embolism [Unknown]
  - Renal failure [Unknown]
  - Low turnover osteopathy [Unknown]
  - Hypertension [Unknown]
  - Anaemia postoperative [Recovered/Resolved]
  - Femur fracture [Unknown]
  - Shoulder arthroplasty [Unknown]
  - Calcium deficiency [Unknown]
  - Atelectasis [Unknown]
  - Scoliosis [Unknown]
  - Electrocardiogram abnormal [Unknown]
  - Sinus tachycardia [Recovered/Resolved]
  - Urinary retention [Recovered/Resolved]
  - Gastric ulcer [Unknown]
  - Osteoarthritis [Unknown]
  - Cataract operation [Unknown]
  - Humerus fracture [Unknown]
  - Rhabdomyolysis [Recovering/Resolving]
  - Genital herpes [Unknown]
  - Gastrointestinal haemorrhage [Unknown]
  - Hypotension [Unknown]
  - Blood magnesium decreased [Unknown]
  - Peptic ulcer [Unknown]
  - Back pain [Not Recovered/Not Resolved]

NARRATIVE: CASE EVENT DATE: 2006
